FAERS Safety Report 5248443-0 (Version None)
Quarter: 2007Q1

REPORT INFORMATION
  Report Type: 
  Country: None (occurrence: None)
  Receive Date: 20070227
  Receipt Date: 20070221
  Transmission Date: 20070707
  Serious: Yes (Hospitalization, Disabling, Other)
  Sender: FDA-Public Use
  Company Number: US-MERCK-0612USA03079

PATIENT
  Age: 56 Year
  Sex: Female

DRUGS (3)
  1. FOSAMAX [Suspect]
     Indication: OSTEOPOROSIS PROPHYLAXIS
     Route: 048
     Dates: start: 19990101, end: 20000101
  2. FOSAMAX [Suspect]
     Route: 048
     Dates: start: 20000101, end: 20051201
  3. ACTONEL [Suspect]
     Route: 065
     Dates: start: 20051201, end: 20060701

REACTIONS (8)
  - ANXIETY [None]
  - APPENDIX DISORDER [None]
  - DENTAL CARIES [None]
  - GALLBLADDER DISORDER [None]
  - HAND FRACTURE [None]
  - LIMB INJURY [None]
  - OSTEONECROSIS [None]
  - SKIN LACERATION [None]
